FAERS Safety Report 4731930-9 (Version None)
Quarter: 2005Q3

REPORT INFORMATION
  Report Type: 
  Country: None (occurrence: None)
  Receive Date: 20050802
  Receipt Date: 20050802
  Transmission Date: 20060218
  Serious: No
  Sender: FDA-Public Use
  Company Number: None

PATIENT
  Age: 24 Year
  Sex: Female
  Weight: 72.5755 kg

DRUGS (3)
  1. ORTHO EVRA [Suspect]
     Indication: ACNE
     Dates: start: 20040601, end: 20040730
  2. ORTHO EVRA [Suspect]
     Indication: DYSMENORRHOEA
     Dates: start: 20040601, end: 20040730
  3. ORTHO EVRA [Suspect]
     Indication: FIBROCYSTIC BREAST DISEASE
     Dates: start: 20040601, end: 20040730

REACTIONS (5)
  - ANAEMIA [None]
  - DRUG EFFECT DECREASED [None]
  - MENSTRUAL DISORDER [None]
  - METRORRHAGIA [None]
  - PHARMACEUTICAL PRODUCT COMPLAINT [None]
